FAERS Safety Report 19001706 (Version 3)
Quarter: 2021Q2

REPORT INFORMATION
  Report Type: Spontaneous
  Country: US (occurrence: US)
  Receive Date: 20210312
  Receipt Date: 20210504
  Transmission Date: 20210717
  Serious: No
  Sender: FDA-Public Use
  Company Number: US-FARMAPROD-202012-1752

PATIENT
  Age: 59 Year
  Sex: Female

DRUGS (16)
  1. OFLOXACIN. [Concomitant]
     Active Substance: OFLOXACIN
  2. VITAMIN D2 [Concomitant]
     Active Substance: ERGOCALCIFEROL
  3. TIMOLOL MALEATE. [Concomitant]
     Active Substance: TIMOLOL MALEATE
  4. PREVACID [Concomitant]
     Active Substance: LANSOPRAZOLE
  5. BLACK COHOSH [Concomitant]
     Active Substance: BLACK COHOSH
  6. MELATONIN [Concomitant]
     Active Substance: MELATONIN
  7. BACLOFEN. [Concomitant]
     Active Substance: BACLOFEN
  8. TECFIDERA [Concomitant]
     Active Substance: DIMETHYL FUMARATE
  9. BRIMONIDINE TARTRATE. [Concomitant]
     Active Substance: BRIMONIDINE TARTRATE
  10. GABAPENTIN. [Concomitant]
     Active Substance: GABAPENTIN
  11. CELEXA [Concomitant]
     Active Substance: CITALOPRAM HYDROBROMIDE
  12. OXERVATE [Suspect]
     Active Substance: CENEGERMIN-BKBJ
     Indication: NEUROTROPHIC KERATOPATHY
     Route: 047
     Dates: start: 20201214
  13. DORZOLAMIDE HCL [Concomitant]
     Active Substance: DORZOLAMIDE HYDROCHLORIDE
  14. OXYBUTYNIN CHLORIDE ER [Concomitant]
     Active Substance: OXYBUTYNIN CHLORIDE
  15. NAPROXEN. [Concomitant]
     Active Substance: NAPROXEN
     Dosage: 125 MG/5 ML
     Route: 048
  16. MOTRIN IB [Concomitant]
     Active Substance: IBUPROFEN

REACTIONS (1)
  - Eye pain [Not Recovered/Not Resolved]

NARRATIVE: CASE EVENT DATE: 202012
